FAERS Safety Report 8062346-8 (Version None)
Quarter: 2012Q1

REPORT INFORMATION
  Report Type: 
  Country: None (occurrence: None)
  Receive Date: 20120113
  Receipt Date: 20120104
  Transmission Date: 20120608
  Serious: Yes (Other)
  Sender: FDA-Public Use
  Company Number: 2007EU002031

PATIENT
  Age: 38 Year
  Sex: Female

DRUGS (8)
  1. PROTOPIC [Suspect]
     Indication: TRANSPLANT REJECTION
     Dosage: /D, TOPICAL
     Route: 061
  2. SIROLIMUS (RAPAMUNE) [Concomitant]
  3. PROGRAF [Suspect]
     Indication: TRANSPLANT
     Dosage: /D, ORAL
     Route: 048
     Dates: start: 20051127
  4. PREDNISOLONE ACETATE [Concomitant]
  5. ACYCLOVIR [Concomitant]
  6. MYCOPHENOLATE MOFETIL [Concomitant]
  7. CLOBETASOL (CLOBETASOL) [Concomitant]
  8. VALACYCLOVIR [Concomitant]

REACTIONS (11)
  - THROMBOTIC MICROANGIOPATHY [None]
  - LIPIDS ABNORMAL [None]
  - OFF LABEL USE [None]
  - ORAL HERPES [None]
  - RENAL FAILURE [None]
  - TRANSPLANT REJECTION [None]
  - HYPERTENSION [None]
  - CERVIX CARCINOMA STAGE 0 [None]
  - HEPATOTOXICITY [None]
  - RENAL FAILURE ACUTE [None]
  - GAMMA-GLUTAMYLTRANSFERASE INCREASED [None]
